FAERS Safety Report 8470263-4 (Version None)
Quarter: 2012Q2

REPORT INFORMATION
  Report Type: 
  Country: None (occurrence: None)
  Receive Date: 20120621
  Receipt Date: 20120621
  Transmission Date: 20120825
  Serious: Yes (Other)
  Sender: FDA-Public Use
  Company Number: None

PATIENT
  Sex: Female
  Weight: 90.7194 kg

DRUGS (1)
  1. SPIRONOLACTONE [Suspect]
     Indication: HIRSUTISM

REACTIONS (4)
  - FAECAL INCONTINENCE [None]
  - URINARY INCONTINENCE [None]
  - DIARRHOEA [None]
  - FLATULENCE [None]
